FAERS Safety Report 12559841 (Version 2)
Quarter: 2016Q3

REPORT INFORMATION
  Report Type: Spontaneous
  Country: US (occurrence: US)
  Receive Date: 20160715
  Receipt Date: 20160822
  Transmission Date: 20161109
  Serious: No
  Sender: FDA-Public Use
  Company Number: US-JNJFOC-20160619320

PATIENT
  Age: 71 Year
  Sex: Female
  Weight: 88.45 kg

DRUGS (10)
  1. WOMENS ROGAINE [Suspect]
     Active Substance: MINOXIDIL
     Indication: ALOPECIA
     Route: 061
  2. EXFORGE [Concomitant]
     Active Substance: AMLODIPINE BESYLATE\VALSARTAN
     Indication: HYPERTENSION
     Dosage: DAILY, YEARS
     Route: 065
  3. ESTROGEN [Concomitant]
     Active Substance: ESTRONE\SUS SCROFA OVARY
     Indication: OESTROGEN REPLACEMENT THERAPY
     Dosage: DAILY, YEARS
     Route: 065
  4. VITAMIN C [Concomitant]
     Active Substance: ASCORBIC ACID
     Indication: ROUTINE HEALTH MAINTENANCE
     Dosage: DAILY, YEARS
     Route: 065
  5. VITAMIN D [Concomitant]
     Active Substance: CHOLECALCIFEROL
     Indication: ROUTINE HEALTH MAINTENANCE
     Dosage: DAILY, YEARS
     Route: 065
  6. POTASSIUM CHLORIDE. [Concomitant]
     Active Substance: POTASSIUM CHLORIDE
     Indication: BLOOD POTASSIUM
     Route: 065
  7. POTASSIUM [Concomitant]
     Active Substance: POTASSIUM
     Indication: ROUTINE HEALTH MAINTENANCE
     Dosage: DAILY, YEARS
     Route: 065
  8. WOMENS ROGAINE [Suspect]
     Active Substance: MINOXIDIL
     Route: 061
  9. SALMON OIL [Concomitant]
     Active Substance: FISH OIL
     Indication: CARDIAC DISORDER
     Dosage: DAILY, YEARS
     Route: 065
  10. BLACK COHOSH EXTRACT [Concomitant]
     Indication: BLOOD OESTROGEN
     Route: 065

REACTIONS (4)
  - Hair growth abnormal [Recovering/Resolving]
  - Underdose [Not Recovered/Not Resolved]
  - Hair colour changes [Not Recovered/Not Resolved]
  - Drug administered at inappropriate site [Not Recovered/Not Resolved]

NARRATIVE: CASE EVENT DATE: 20160103
